FAERS Safety Report 20960949 (Version 1)
Quarter: 2022Q2

REPORT INFORMATION
  Report Type: Spontaneous
  Country: FR (occurrence: FR)
  Receive Date: 20220615
  Receipt Date: 20220615
  Transmission Date: 20220721
  Serious: Yes (Death, Other)
  Sender: FDA-Public Use
  Company Number: FR-AFSSAPS-AM20221504

PATIENT
  Age: 66 Year
  Sex: Male
  Weight: 100 kg

DRUGS (3)
  1. PERINDOPRIL [Suspect]
     Active Substance: PERINDOPRIL
     Indication: Hypertension
     Dosage: 2 MILLIGRAM, ONCE A DAY
     Route: 065
     Dates: end: 20220423
  2. COMIRNATY [Suspect]
     Active Substance: TOZINAMERAN
     Indication: COVID-19 immunisation
     Dosage: 3 DOSAGE FORM (D1+D2+R1)
     Route: 030
     Dates: start: 20210424, end: 20211209
  3. INFLUVAC TETRA [Suspect]
     Active Substance: INFLUENZA VIRUS VACCINE QUADRIVALENT TYPE A+B
     Indication: Influenza immunisation
     Dosage: 1 DOSAGE FORM
     Route: 030
     Dates: start: 20211029, end: 20211029

REACTIONS (1)
  - Creutzfeldt-Jakob disease [Fatal]

NARRATIVE: CASE EVENT DATE: 20220101
